FAERS Safety Report 8947716 (Version 2)
Quarter: 2012Q4

REPORT INFORMATION
  Report Type: Report from Study
  Country: AT (occurrence: AT)
  Receive Date: 20121204
  Receipt Date: 20121226
  Transmission Date: 20130627
  Serious: Yes (Hospitalization)
  Sender: FDA-Public Use
  Company Number: AT-VERTEX PHARMACEUTICALS INC.-2012-025500

PATIENT
  Age: 55 Year
  Sex: Female
  Weight: 65 kg

DRUGS (6)
  1. VX-950 (TELAPREVIR) [Suspect]
     Indication: HEPATITIS C
     Dosage: 750 mg, tid
     Route: 048
     Dates: start: 20110316, end: 20110607
  2. Z-PEGYLATED INTERFERON-2A [Suspect]
     Indication: HEPATITIS C
     Dosage: 180 ?g, qw
     Route: 058
     Dates: start: 20110316
  3. RIBAVIRIN [Suspect]
     Indication: HEPATITIS C
     Dosage: 1000 mg, bid
     Route: 048
     Dates: start: 20110316, end: 20110414
  4. RIBAVIRIN [Suspect]
     Dosage: 400 mg, bid
     Route: 048
     Dates: start: 20110415, end: 20110429
  5. RIBAVIRIN [Suspect]
     Dosage: 200 mg, qd
     Route: 048
     Dates: start: 20110429, end: 20110511
  6. RIBAVIRIN [Suspect]
     Dosage: 600 mg, bid
     Route: 048
     Dates: start: 20110511

REACTIONS (6)
  - Pyrexia [Recovered/Resolved]
  - Haematochezia [None]
  - Anaemia [None]
  - Myalgia [None]
  - Arthralgia [None]
  - Viral infection [None]
